FAERS Safety Report 5046887-3 (Version None)
Quarter: 2006Q2

REPORT INFORMATION
  Report Type: 
  Country: None (occurrence: None)
  Receive Date: 20060630
  Receipt Date: 20060620
  Transmission Date: 20061013
  Serious: Yes (Death)
  Sender: FDA-Public Use
  Company Number: 111106ISR

PATIENT
  Age: 40 Year
  Sex: Male

DRUGS (5)
  1. FLUOXETINE HYDROCHLORIDE [Suspect]
  2. OLANZAPINE [Suspect]
  3. ETHANOL [Suspect]
  4. DIAZEPAM [Concomitant]
  5. TEMAZEPAM [Concomitant]

REACTIONS (3)
  - DEPRESSED LEVEL OF CONSCIOUSNESS [None]
  - DRUG LEVEL INCREASED [None]
  - RESPIRATORY DEPRESSION [None]
